FAERS Safety Report 11322536 (Version 1)
Quarter: 2015Q3

REPORT INFORMATION
  Report Type: Spontaneous
  Country: US (occurrence: None)
  Receive Date: 20150728
  Receipt Date: 20150728
  Transmission Date: 20151125
  Serious: Yes (Hospitalization, Other)
  Sender: FDA-Public Use
  Company Number: US-2014VAL000418

PATIENT
  Age: 47 Year
  Sex: Male

DRUGS (1)
  1. LOPRESSOR [Suspect]
     Active Substance: METOPROLOL TARTRATE
     Indication: HYPERTENSION
     Route: 048

REACTIONS (13)
  - Apnoeic attack [None]
  - Suicide attempt [None]
  - Coma [None]
  - Cardiotoxicity [None]
  - Pulseless electrical activity [None]
  - Hypotension [None]
  - Acute kidney injury [None]
  - Transaminases increased [None]
  - Drug ineffective [None]
  - Bradycardia [None]
  - Lactic acidosis [None]
  - Cardiac arrest [None]
  - Intentional overdose [None]
